FAERS Safety Report 8908991 (Version 1)
Quarter: 2012Q4

REPORT INFORMATION
  Report Type: 
  Country: US (occurrence: US)
  Receive Date: 20121113
  Receipt Date: 20121113
  Transmission Date: 20130627
  Serious: No
  Sender: FDA-Public Use
  Company Number: US-AMGEN-USASP2012011677

PATIENT
  Sex: Female

DRUGS (13)
  1. ENBREL [Suspect]
     Indication: PRODUCT USED FOR UNKNOWN INDICATION
     Dosage: 25 mg, 2 times/wk
     Route: 058
  2. CYMBALTA [Concomitant]
     Dosage: 20 mg, UNK
  3. COREG CR [Concomitant]
     Dosage: 10 mg, UNK
  4. METHOTREXATE [Concomitant]
     Dosage: 2.5 mg, UNK
  5. PREDNISONE [Concomitant]
     Dosage: 1 mg, UNK
  6. NEURONTIN [Concomitant]
     Dosage: 100 mg, UNK
  7. VICODIN [Concomitant]
     Dosage: UNK
  8. SYNTHROID [Concomitant]
     Dosage: 75 mug, UNK
  9. FOLIC ACID [Concomitant]
     Dosage: 1 mg, UNK
  10. PLAVIX [Concomitant]
     Dosage: 75 mg, UNK
  11. RANITIDINE [Concomitant]
     Dosage: 150 mg, UNK
  12. VITAMIN D /00107901/ [Concomitant]
     Dosage: 1000 IU, UNK
  13. CALCIUM [Concomitant]

REACTIONS (2)
  - Blister [Unknown]
  - Localised infection [Unknown]
